FAERS Safety Report 5524888-6 (Version None)
Quarter: 2007Q4

REPORT INFORMATION
  Report Type: 
  Country: None (occurrence: None)
  Receive Date: 20071119
  Receipt Date: 20070925
  Transmission Date: 20080405
  Serious: Yes (Hospitalization)
  Sender: FDA-Public Use
  Company Number: 380001E07SWE

PATIENT
  Age: 31 Year
  Sex: Female

DRUGS (1)
  1. CRINONE [Suspect]
     Dosage: VAGINAL
     Route: 067
     Dates: start: 20070329, end: 20070409

REACTIONS (1)
  - SCIATICA [None]
